FAERS Safety Report 8444304-4 (Version None)
Quarter: 2012Q2

REPORT INFORMATION
  Report Type: 
  Country: None (occurrence: None)
  Receive Date: 20120618
  Receipt Date: 20120614
  Transmission Date: 20120825
  Serious: No
  Sender: FDA-Public Use
  Company Number: US-PFIZER INC-2012144923

PATIENT
  Sex: Female
  Weight: 74.83 kg

DRUGS (13)
  1. SOMA [Concomitant]
     Indication: INTERVERTEBRAL DISC PROTRUSION
     Dosage: 350 MG, 3X/DAY
  2. GABAPENTIN [Concomitant]
     Indication: NERVE INJURY
  3. PREDNISOLONE [Concomitant]
     Indication: SYSTEMIC LUPUS ERYTHEMATOSUS
     Dosage: 5 MG, DAILY
  4. CYMBALTA [Concomitant]
     Indication: FIBROMYALGIA
     Dosage: 260 MG, 2X/DAY
  5. GABAPENTIN [Concomitant]
     Indication: NEUROPATHY PERIPHERAL
     Dosage: 1200 MG, 3X/DAY
  6. SOLU-MEDROL [Suspect]
     Dosage: UNK
     Dates: start: 20120101, end: 20120101
  7. SYNTHROID [Concomitant]
     Indication: THYROID DISORDER
     Dosage: 88 UG, UNK
  8. BELIMUMAB [Concomitant]
     Indication: SYSTEMIC LUPUS ERYTHEMATOSUS
     Dosage: UNK, EVERY 4 WEEKS
  9. ESTRADIOL [Suspect]
     Dosage: UNK
     Dates: start: 20120401, end: 20120601
  10. NEXIUM [Concomitant]
     Indication: GASTRIC ULCER
     Dosage: 40 MG, DAILY
  11. CARAFATE [Concomitant]
     Indication: GASTRIC ULCER
     Dosage: 1GM/10ML, 4X/DAY
  12. METHOTREXATE [Concomitant]
     Indication: SYSTEMIC LUPUS ERYTHEMATOSUS
     Dosage: ^25 MG/ML AND 8 ML^ WEEKLY (EVERY FRIDAY)
  13. URSODIOL [Concomitant]
     Indication: IMPAIRED GASTRIC EMPTYING
     Dosage: 250 MG, 2X/DAY

REACTIONS (3)
  - BLOOD GLUCOSE INCREASED [None]
  - MIGRAINE [None]
  - CRYING [None]
